FAERS Safety Report 4899936-7 (Version None)
Quarter: 2006Q1

REPORT INFORMATION
  Report Type: 
  Country: None (occurrence: None)
  Receive Date: 20060131
  Receipt Date: 20060121
  Transmission Date: 20060701
  Serious: Yes (Hospitalization, Other)
  Sender: FDA-Public Use
  Company Number: L06-USA-00056-01

PATIENT
  Sex: Male
  Weight: 3.1 kg

DRUGS (2)
  1. CITALOPRAM HYDROBROMIDE [Suspect]
     Dosage: 20 MG DAILY; TRANSPLACENTAL
     Route: 064
  2. CLONAZEPAM [Concomitant]

REACTIONS (5)
  - APGAR SCORE LOW [None]
  - BRACHIAL PLEXOPATHY [None]
  - DRUG EXPOSURE DURING PREGNANCY [None]
  - HYPOTONIA NEONATAL [None]
  - TRANSIENT TACHYPNOEA OF THE NEWBORN [None]
